FAERS Safety Report 8592959-6 (Version None)
Quarter: 2012Q3

REPORT INFORMATION
  Report Type: 
  Country: None (occurrence: None)
  Receive Date: 20120814
  Receipt Date: 20120808
  Transmission Date: 20120928
  Serious: Yes (Death, Hospitalization)
  Sender: FDA-Public Use
  Company Number: US-CELGENEUS-163-21880-12072839

PATIENT
  Sex: Female

DRUGS (28)
  1. PROCHLORPERAZINE [Concomitant]
     Dosage: 10 MILLIGRAM
     Route: 048
  2. BUTALBITAL/ACETAMINOPHEN [Concomitant]
     Route: 065
     Dates: start: 20120611
  3. ONDANSETRON [Concomitant]
     Dosage: 4 MILLIGRAM
     Route: 048
     Dates: start: 20120522
  4. PREDNISONE TAB [Concomitant]
     Dosage: 50 MILLIGRAM
     Route: 048
  5. MIRTAZAPINE [Concomitant]
     Dosage: 15 MILLIGRAM
     Route: 048
  6. SENNA LAX [Concomitant]
     Route: 048
  7. FENTANYL [Concomitant]
     Dosage: 75 MICROGRAM
     Route: 065
     Dates: start: 20120711
  8. OLANZAPINE [Concomitant]
     Dosage: 5 MILLIGRAM
     Route: 048
     Dates: start: 20120417
  9. DEXAMETHASONE [Concomitant]
     Dosage: 4 MILLIGRAM
     Route: 048
     Dates: start: 20120417
  10. LORAZEPAM [Concomitant]
     Dosage: .5 MILLIGRAM
     Route: 048
     Dates: start: 20120325
  11. BUPROPION HCL [Concomitant]
     Dosage: 150 MILLIGRAM
     Route: 048
     Dates: start: 20120227
  12. PROCHLORPERAZINE [Concomitant]
     Dosage: 10 MILLIGRAM
     Route: 048
     Dates: start: 20120616
  13. REVLIMID [Suspect]
     Indication: MULTIPLE MYELOMA
     Dosage: 25 MILLIGRAM
     Route: 048
     Dates: start: 20120405, end: 20120711
  14. FENTANYL [Concomitant]
     Dosage: 25 MICROGRAM
     Route: 065
     Dates: start: 20120702
  15. ASPIRIN [Concomitant]
     Dosage: 81 MILLIGRAM
     Route: 048
     Dates: start: 20120430
  16. METOPROLOL [Concomitant]
     Dosage: 25 MILLIGRAM
     Route: 065
     Dates: start: 20120417
  17. TRIAMCINOLONE [Concomitant]
     Dosage: .5 PERCENT
     Route: 061
  18. PREDNISONE TAB [Concomitant]
     Dosage: 20 MILLIGRAM
     Route: 048
  19. HYDROMORPHONE HYDROCHLORIDE [Concomitant]
     Dosage: 2 MILLIGRAM
     Route: 048
     Dates: start: 20120709
  20. MARINOL [Concomitant]
     Dosage: 50 MILLIGRAM
     Route: 048
     Dates: start: 20120621
  21. Q-PAP [Concomitant]
     Dosage: 325 MILLIGRAM
     Route: 048
  22. LEXAPRO [Concomitant]
     Dosage: 10 MILLIGRAM
     Route: 048
  23. CLIMARA [Concomitant]
     Dosage: .5 MILLIGRAM
     Route: 065
     Dates: start: 20110221
  24. DRONABINOL [Concomitant]
     Dosage: 25 MILLIGRAM
     Route: 048
     Dates: start: 20120626
  25. LORAZEPAM [Concomitant]
     Dosage: .5 MILLIGRAM
     Route: 048
  26. BUPROPION HCL [Concomitant]
     Dosage: 150 MILLIGRAM
     Route: 048
  27. CLIMARA [Concomitant]
     Dosage: .5 MILLIGRAM
     Route: 065
     Dates: start: 20111025
  28. CLIMARA [Concomitant]
     Dosage: .5 MILLIGRAM
     Route: 065

REACTIONS (3)
  - DEATH [None]
  - PLATELET COUNT DECREASED [None]
  - JOINT INJURY [None]
